FAERS Safety Report 9206987 (Version 1)
Quarter: 2013Q2

REPORT INFORMATION
  Report Type: Spontaneous
  Country: US (occurrence: US)
  Receive Date: 20130403
  Receipt Date: 20130403
  Transmission Date: 20140414
  Serious: No
  Sender: FDA-Public Use
  Company Number: US-BAYER-2013-041830

PATIENT
  Age: 89 Year
  Sex: Female
  Weight: 73 kg

DRUGS (5)
  1. ALEVE GELCAPS [Suspect]
     Indication: ARTHRITIS
     Dosage: 1 DF, QD WITH FOOD
     Route: 048
     Dates: start: 201301
  2. LOW THYROID MEDICATION [Concomitant]
  3. PRESERVISION [Concomitant]
  4. PROBOTIC (OTHER BRAND) [Concomitant]
  5. CALCIUM [Concomitant]

REACTIONS (1)
  - Incorrect drug administration duration [None]
